FAERS Safety Report 8491783-2 (Version None)
Quarter: 2012Q3

REPORT INFORMATION
  Report Type: 
  Country: None (occurrence: None)
  Receive Date: 20120706
  Receipt Date: 20120702
  Transmission Date: 20120928
  Serious: No
  Sender: FDA-Public Use
  Company Number: US-BAYER-2012-065800

PATIENT
  Sex: Female

DRUGS (3)
  1. ALEVE (CAPLET) [Suspect]
     Indication: ARTHRALGIA
     Dosage: 3 DF, UNK
     Route: 048
  2. ALEVE (CAPLET) [Suspect]
     Indication: BACK PAIN
  3. ALEVE (CAPLET) [Suspect]
     Indication: PAIN IN EXTREMITY

REACTIONS (1)
  - NO ADVERSE EVENT [None]
